FAERS Safety Report 5078262-X (Version None)
Quarter: 2006Q3

REPORT INFORMATION
  Report Type: 
  Country: None (occurrence: None)
  Receive Date: 20060811
  Receipt Date: 20060728
  Transmission Date: 20061208
  Serious: Yes (Hospitalization, Other)
  Sender: FDA-Public Use
  Company Number: US-AMGEN-STX188264

PATIENT
  Sex: Female

DRUGS (2)
  1. ENBREL [Suspect]
     Indication: RHEUMATOID ARTHRITIS
     Route: 058
     Dates: start: 20001208, end: 20060301
  2. PLAQUENIL [Concomitant]
     Indication: RHEUMATOID ARTHRITIS
     Route: 065

REACTIONS (8)
  - ARTHRALGIA [None]
  - BRONCHOSCOPY [None]
  - FALL [None]
  - HIP FRACTURE [None]
  - JOINT ARTHROPLASTY [None]
  - JOINT SURGERY [None]
  - LUNG NEOPLASM [None]
  - NEPHROLITHIASIS [None]
